FAERS Safety Report 24076220 (Version 1)
Quarter: 2024Q3

REPORT INFORMATION
  Report Type: Spontaneous
  Country: CN (occurrence: CN)
  Receive Date: 20240711
  Receipt Date: 20240711
  Transmission Date: 20241016
  Serious: Yes (Life-Threatening)
  Sender: ELI LILLY AND CO
  Company Number: CN-Merck Healthcare KGaA-2024036497

PATIENT
  Age: 50 Year
  Sex: Female
  Weight: 43 kg

DRUGS (2)
  1. ERBITUX [Suspect]
     Active Substance: CETUXIMAB
     Indication: Rectal cancer metastatic
     Dosage: 300 MG, UNK
     Route: 041
     Dates: start: 20240601
  2. DEXAMETHASONE [Concomitant]
     Active Substance: DEXAMETHASONE
     Indication: Antiallergic therapy
     Dosage: 5 MG, UNK

REACTIONS (7)
  - Palpitations [Recovering/Resolving]
  - Pruritus [Recovering/Resolving]
  - Macule [Recovering/Resolving]
  - Syncope [Recovering/Resolving]
  - Dizziness [Recovering/Resolving]
  - Laryngeal pain [Recovering/Resolving]
  - Hypotension [Recovering/Resolving]

NARRATIVE: CASE EVENT DATE: 20240601
